FAERS Safety Report 4943465-9 (Version None)
Quarter: 2006Q1

REPORT INFORMATION
  Report Type: 
  Country: None (occurrence: None)
  Receive Date: 20060313
  Receipt Date: 20060313
  Transmission Date: 20060701
  Serious: Yes (Hospitalization)
  Sender: FDA-Public Use
  Company Number: None

PATIENT
  Sex: Male

DRUGS (23)
  1. CYCLOPHOSPHAMIDE [Suspect]
     Indication: LEUKAEMIA
     Dosage: 750 MG/ML DAY #1
  2. DOXORUBICIN  50MG/M2  IVP DAY # 1 [Suspect]
     Dosage: 50 MG/ML IVP DAY #1
     Route: 042
  3. VINCRISTINE [Suspect]
     Dosage: 2 MG IVP D#1
     Route: 042
  4. PREDNISONE [Suspect]
     Dosage: 100 MG PO DAYS 1 - 5
     Route: 048
  5. CAMPATH [Suspect]
     Dosage: SEE IMAGE
     Dates: start: 20060117, end: 20060120
  6. CAMPATH [Suspect]
     Dosage: SEE IMAGE
     Dates: start: 20060123
  7. CAMPATH [Suspect]
     Dosage: SEE IMAGE
     Dates: start: 20060213
  8. NEULASTA [Concomitant]
  9. PLAVIX [Concomitant]
  10. METOPROLOL [Concomitant]
  11. FOLIC ACID [Concomitant]
  12. HYDROCHLOROTHIAZIDE [Concomitant]
  13. MS CONTIN [Concomitant]
  14. OXYCODONE [Concomitant]
  15. LANTUS [Concomitant]
  16. KYTRIL [Concomitant]
  17. LEXPRO [Concomitant]
  18. ALLOPURINOL [Concomitant]
  19. COMBIVENT [Concomitant]
  20. BACTRIM [Concomitant]
  21. DURAGESIC-100 [Concomitant]
  22. STOOL SOFTNERS [Concomitant]
  23. PREDNISONE [Concomitant]

REACTIONS (8)
  - BACK PAIN [None]
  - BRONCHITIS [None]
  - CHRONIC OBSTRUCTIVE PULMONARY DISEASE [None]
  - HAEMOGLOBIN DECREASED [None]
  - NASOPHARYNGITIS [None]
  - PAIN IN EXTREMITY [None]
  - PNEUMONIA [None]
  - RESTLESSNESS [None]
